FAERS Safety Report 8848547 (Version 1)
Quarter: 2012Q4

REPORT INFORMATION
  Report Type: 
  Country: US (occurrence: US)
  Receive Date: 20121018
  Receipt Date: 20121018
  Transmission Date: 20130627
  Serious: Yes (Hospitalization)
  Sender: FDA-Public Use
  Company Number: US-GLAXOSMITHKLINE-A0815603A

PATIENT
  Sex: Male
  Weight: 115.5 kg

DRUGS (1)
  1. ROSIGLITAZONE [Suspect]
     Indication: DIABETES MELLITUS
     Route: 048
     Dates: start: 20020402, end: 20090601

REACTIONS (5)
  - Cardiac failure congestive [Unknown]
  - Hypertension [Unknown]
  - Coronary artery bypass [Unknown]
  - Transient ischaemic attack [Unknown]
  - Autoimmune disorder [Unknown]
